FAERS Safety Report 15021360 (Version 2)
Quarter: 2018Q2

REPORT INFORMATION
  Report Type: Spontaneous
  Country: US (occurrence: US)
  Receive Date: 20180618
  Receipt Date: 20180628
  Transmission Date: 20180711
  Serious: No
  Sender: FDA-Public Use
  Company Number: US-APOTEX-2017AP012570

PATIENT
  Sex: Female

DRUGS (1)
  1. BUDESONIDE NASAL SPRAY [Suspect]
     Active Substance: BUDESONIDE
     Indication: PRODUCT USED FOR UNKNOWN INDICATION
     Route: 045

REACTIONS (2)
  - Nasal congestion [Unknown]
  - Paradoxical drug reaction [Unknown]
